FAERS Safety Report 18769107 (Version 2)
Quarter: 2021Q1

REPORT INFORMATION
  Report Type: Spontaneous
  Country: US (occurrence: US)
  Receive Date: 20210121
  Receipt Date: 20210308
  Transmission Date: 20210419
  Serious: Yes (Other)
  Sender: FDA-Public Use
  Company Number: US-PFIZER INC-2021021614

PATIENT
  Age: 33 Year
  Sex: Female
  Weight: 119.29 kg

DRUGS (3)
  1. DEPO?PROVERA [Suspect]
     Active Substance: MEDROXYPROGESTERONE ACETATE
     Indication: CONTRACEPTION
     Dosage: 150 MG, (FOR 3 MONTHS)
     Route: 030
     Dates: start: 20201001
  2. DEPO?PROVERA [Suspect]
     Active Substance: MEDROXYPROGESTERONE ACETATE
     Dosage: 150 MG [EVERY 3 MONTHS]
     Route: 030
     Dates: start: 20200709, end: 20201230
  3. DEPO?PROVERA [Suspect]
     Active Substance: MEDROXYPROGESTERONE ACETATE
     Dosage: UNK
     Route: 030
     Dates: start: 20201230

REACTIONS (14)
  - Contusion [Not Recovered/Not Resolved]
  - Hypoaesthesia [Not Recovered/Not Resolved]
  - Pain in extremity [Not Recovered/Not Resolved]
  - Injection site reaction [Recovered/Resolved]
  - Pain [Unknown]
  - Blister [Not Recovered/Not Resolved]
  - Scar pain [Not Recovered/Not Resolved]
  - Asthenia [Unknown]
  - Pruritus [Not Recovered/Not Resolved]
  - Skin exfoliation [Not Recovered/Not Resolved]
  - Muscle disorder [Not Recovered/Not Resolved]
  - Scab [Not Recovered/Not Resolved]
  - Throat tightness [Not Recovered/Not Resolved]
  - Urticaria [Not Recovered/Not Resolved]

NARRATIVE: CASE EVENT DATE: 20201230
